FAERS Safety Report 24330183 (Version 1)
Quarter: 2024Q3

REPORT INFORMATION
  Report Type: Spontaneous
  Country: GB (occurrence: None)
  Receive Date: 20240917
  Receipt Date: 20240917
  Transmission Date: 20241016
  Serious: Yes (Other)
  Sender: ASTRAZENECA
  Company Number: 2024A208415

PATIENT
  Sex: Female
  Weight: 71 kg

DRUGS (8)
  1. DAPAGLIFLOZIN [Suspect]
     Active Substance: DAPAGLIFLOZIN
     Indication: Left ventricular failure
     Dosage: 10MG DAILY
     Route: 048
     Dates: start: 20240502, end: 20240820
  2. OMEPRAZOLE [Concomitant]
     Active Substance: OMEPRAZOLE
  3. ASPIRIN [Concomitant]
     Active Substance: ASPIRIN
  4. ATORVASTATIN [Concomitant]
     Active Substance: ATORVASTATIN
  5. BISOPROLOL [Concomitant]
     Active Substance: BISOPROLOL\BISOPROLOL FUMARATE
  6. FUROSEMIDE [Concomitant]
     Active Substance: FUROSEMIDE
  7. SACUBITRIL AND SACUBITRIL/VALSARTAN AND VALSARTAN [Concomitant]
  8. SENNA [Concomitant]
     Active Substance: SENNA LEAF\SENNOSIDES\SENNOSIDES A AND B

REACTIONS (3)
  - Liver function test abnormal [Recovering/Resolving]
  - Blood alkaline phosphatase increased [Unknown]
  - Alanine aminotransferase increased [Unknown]

NARRATIVE: CASE EVENT DATE: 20240819
